FAERS Safety Report 19854873 (Version 1)
Quarter: 2021Q3

REPORT INFORMATION
  Report Type: Spontaneous
  Country: US (occurrence: US)
  Receive Date: 20210918
  Receipt Date: 20210918
  Transmission Date: 20211014
  Serious: Yes (Other)
  Sender: FDA-Public Use
  Company Number: None

PATIENT
  Age: 56 Year
  Sex: Female
  Weight: 160 kg

DRUGS (8)
  1. ASPIRIN. [Concomitant]
     Active Substance: ASPIRIN
  2. DILTIAZEM XR [Suspect]
     Active Substance: DILTIAZEM
     Indication: HYPERTENSION
     Dosage: ?          OTHER STRENGTH:24 HR;QUANTITY:1 CAPSULE(S);?
     Route: 048
     Dates: start: 20210908, end: 20210913
  3. TRIAMTERENE/HCT [Concomitant]
  4. CARDIZEM [Concomitant]
     Active Substance: DILTIAZEM HYDROCHLORIDE
  5. LOSARTAN. [Concomitant]
     Active Substance: LOSARTAN
  6. PRAVASTATIN. [Concomitant]
     Active Substance: PRAVASTATIN
  7. ZOLOFT [Concomitant]
     Active Substance: SERTRALINE HYDROCHLORIDE
  8. COENZYME Q10 [Concomitant]
     Active Substance: DIETARY SUPPLEMENT\UBIDECARENONE

REACTIONS (5)
  - Product physical issue [None]
  - Blood pressure increased [None]
  - Feeling abnormal [None]
  - Manufacturing issue [None]
  - Product quality issue [None]

NARRATIVE: CASE EVENT DATE: 20210913
